FAERS Safety Report 20503891 (Version 1)
Quarter: 2022Q1

REPORT INFORMATION
  Report Type: Spontaneous
  Country: US (occurrence: None)
  Receive Date: 20220221
  Receipt Date: 20220221
  Transmission Date: 20220424
  Serious: Yes (Disabling)
  Sender: FDA-Public Use
  Company Number: None

PATIENT
  Sex: Female
  Weight: 81.65 kg

DRUGS (1)
  1. MIRENA [Suspect]
     Active Substance: LEVONORGESTREL
     Indication: Contraception
     Dates: start: 20191101, end: 20220121

REACTIONS (18)
  - Psoriatic arthropathy [None]
  - Gait disturbance [None]
  - Influenza like illness [None]
  - Asthenia [None]
  - Feeling abnormal [None]
  - Job dissatisfaction [None]
  - Pain [None]
  - Disturbance in attention [None]
  - Psoriasis [None]
  - Memory impairment [None]
  - Psoriasis [None]
  - Obstructive defaecation [None]
  - Muscle tightness [None]
  - Embedded device [None]
  - Uterine leiomyoma [None]
  - Haemorrhagic ovarian cyst [None]
  - Gastrointestinal disorder [None]
  - Device difficult to use [None]

NARRATIVE: CASE EVENT DATE: 20191101
